FAERS Safety Report 16860354 (Version 1)
Quarter: 2019Q3

REPORT INFORMATION
  Report Type: Spontaneous
  Country: US (occurrence: US)
  Receive Date: 20190927
  Receipt Date: 20190927
  Transmission Date: 20191005
  Serious: No
  Sender: FDA-Public Use
  Company Number: US-SUN PHARMACEUTICAL INDUSTRIES LTD-2019R1-210721

PATIENT
  Sex: Female

DRUGS (1)
  1. QUININE [Suspect]
     Active Substance: QUININE
     Indication: INFLAMMATION
     Dosage: 2 DOSE, BID
     Route: 065

REACTIONS (2)
  - Off label use [Unknown]
  - Therapeutic response unexpected [Unknown]
